FAERS Safety Report 5027135-7 (Version None)
Quarter: 2006Q2

REPORT INFORMATION
  Report Type: 
  Country: None (occurrence: None)
  Receive Date: 20060615
  Receipt Date: 20060515
  Transmission Date: 20061013
  Serious: Yes (Death, Life-Threatening, Hospitalization)
  Sender: FDA-Public Use
  Company Number: US-SANOFI-SYNTHELABO-F01200601220

PATIENT
  Sex: Male
  Weight: 91 kg

DRUGS (10)
  1. ACETAMINOPHEN [Concomitant]
     Indication: PAIN
  2. DOLASETRON [Concomitant]
  3. COMPAZINE [Concomitant]
     Indication: NAUSEA
  4. LORAZEPAM [Concomitant]
     Indication: NAUSEA
  5. GLYBURIDE [Concomitant]
     Indication: HYPERGLYCAEMIA
  6. CA/MG OR PLACEBO [Suspect]
     Indication: COLORECTAL CANCER METASTATIC
     Route: 042
     Dates: start: 20060510, end: 20060510
  7. AVASTIN [Suspect]
     Indication: COLORECTAL CANCER METASTATIC
     Route: 042
     Dates: start: 20060510, end: 20060510
  8. LEUCOVORIN [Suspect]
     Indication: COLORECTAL CANCER METASTATIC
     Route: 042
     Dates: start: 20060510, end: 20060510
  9. FLUOROURACIL [Suspect]
     Indication: COLORECTAL CANCER METASTATIC
     Dosage: 2400 MG/M2 IV ON DAY 1 AND DAY 2, Q2W
     Route: 042
     Dates: start: 20060510, end: 20060510
  10. OXALIPLATIN [Suspect]
     Indication: COLORECTAL CANCER METASTATIC
     Route: 042
     Dates: start: 20060510, end: 20060510

REACTIONS (1)
  - CARDIAC ARREST [None]
